FAERS Safety Report 9535910 (Version 2)
Quarter: 2013Q3

REPORT INFORMATION
  Report Type: Spontaneous
  Country: US (occurrence: None)
  Receive Date: 20130507
  Receipt Date: 20130724
  Transmission Date: 20140515
  Serious: Yes (Other)
  Sender: FDA-Public Use
  Company Number: PHEH2013US002066

PATIENT
  Sex: Female

DRUGS (2)
  1. AFINITOR (RAD) UNKNOWN [Suspect]
     Indication: BREAST CANCER
     Dosage: , ORAL
     Route: 048
  2. FASLODEX (FULVESTRANT) [Concomitant]

REACTIONS (1)
  - Drug ineffective [None]
